FAERS Safety Report 8784101 (Version 2)
Quarter: 2013Q4

REPORT INFORMATION
  Report Type: Report from Study
  Country: GB (occurrence: GB)
  Receive Date: 20120913
  Receipt Date: 20131105
  Transmission Date: 20140711
  Serious: Yes (Hospitalization)
  Sender: FDA-Public Use
  Company Number: GB-009507513-1208GBR004239

PATIENT
  Age: 17 Year
  Sex: Female
  Weight: 57.8 kg

DRUGS (28)
  1. TEMODAL [Suspect]
     Indication: BRAIN NEOPLASM MALIGNANT
     Dosage: 120 MG, UNK
     Dates: start: 20120227, end: 20120410
  2. TEMODAL [Suspect]
     Dosage: UNK
     Route: 048
     Dates: start: 20120607, end: 20120611
  3. TEMODAL [Suspect]
     Dosage: 320 MG, QD
     Route: 048
     Dates: start: 20120802
  4. KEPPRA [Concomitant]
     Dosage: 1500 MG, UNK
     Dates: start: 20110901
  5. KEPPRA [Concomitant]
     Dosage: 750 MG, BID
     Dates: start: 201201
  6. NORETHINDRONE [Concomitant]
     Dosage: 15 MG, UNK
     Dates: start: 20120208
  7. NORETHINDRONE [Concomitant]
     Dosage: 15 MG, UNK
     Dates: start: 20120308
  8. NORETHINDRONE [Concomitant]
     Dosage: 15 MG, UNK
     Dates: start: 201205
  9. SULFAMETHOXAZOLE (+) TRIMETHOPRIM [Concomitant]
     Dosage: 480 MG, PRN
     Dates: start: 201205
  10. SULFAMETHOXAZOLE (+) TRIMETHOPRIM [Concomitant]
     Dosage: UNK
     Dates: start: 20120817
  11. HYDROCORTISONE [Concomitant]
     Dosage: UNK
     Route: 061
     Dates: start: 20120322, end: 20120413
  12. HYDROCORTISONE [Concomitant]
     Dosage: 1 % MG, BID
     Route: 061
     Dates: start: 20120328, end: 20120413
  13. LACTULOSE [Concomitant]
     Dosage: 10 ML, PRN
     Dates: start: 20120410
  14. PIRITON [Concomitant]
     Dosage: UNK, BID
     Dates: start: 20120227
  15. ONDANSETRON [Concomitant]
     Dosage: 8 MG, BID
     Route: 048
     Dates: start: 20120227
  16. ONDANSETRON [Concomitant]
     Dosage: 8 MG, UNK
     Route: 048
     Dates: start: 20120301
  17. SILICONE [Concomitant]
     Dosage: UNK, BID
     Dates: start: 20120410
  18. DIFFLAM (BENZYDAMINE HYDROCHLORIDE) [Concomitant]
     Dosage: 15 ML, PRN
     Dates: start: 201205
  19. CHLORPHENAMINE [Concomitant]
     Dosage: UNK UNK, PRN
     Route: 048
     Dates: start: 20120224
  20. CHLORPHENAMINE [Concomitant]
     Dosage: 4 MG, QD
     Route: 048
     Dates: start: 20120530
  21. CERUMOL [Concomitant]
     Dosage: UNK
     Dates: start: 20120523, end: 20120611
  22. BACTROBAN [Concomitant]
     Dosage: UNK
     Dates: start: 20120315, end: 20120611
  23. CORSODYL [Concomitant]
     Dosage: 10 ML, PRN, ONCE A DAY
     Dates: start: 201205
  24. E45 CREAM [Concomitant]
     Dosage: UNK, PRN
     Dates: start: 201203
  25. CEANEL [Concomitant]
  26. DERMATIX [Concomitant]
  27. EMLA [Concomitant]
     Dosage: UNK, PRN
     Dates: start: 20120307
  28. DURAPHAT [Concomitant]

REACTIONS (3)
  - Oropharyngeal pain [Recovering/Resolving]
  - Oropharyngeal pain [Recovered/Resolved]
  - Tonsillitis [Unknown]
